FAERS Safety Report 15095149 (Version 1)
Quarter: 2018Q3

REPORT INFORMATION
  Report Type: Report from Study
  Country: None (occurrence: US)
  Receive Date: 20180702
  Receipt Date: 20180702
  Transmission Date: 20181010
  Serious: Yes (Hospitalization, Other)
  Sender: FDA-Public Use
  Company Number: US-ABBVIE-18K-163-2354892-00

PATIENT
  Sex: Male
  Weight: 95.34 kg

DRUGS (8)
  1. HUMIRA [Suspect]
     Active Substance: ADALIMUMAB
     Indication: PSORIATIC ARTHROPATHY
     Route: 058
     Dates: start: 2015, end: 20180219
  2. CYMBALTA [Concomitant]
     Active Substance: DULOXETINE HYDROCHLORIDE
     Indication: DEPRESSION
  3. KLONOPIN [Concomitant]
     Active Substance: CLONAZEPAM
     Indication: DIZZINESS
  4. HUMIRA [Suspect]
     Active Substance: ADALIMUMAB
     Indication: PSORIASIS
     Route: 058
     Dates: start: 20180430
  5. CYMBALTA [Concomitant]
     Active Substance: DULOXETINE HYDROCHLORIDE
     Indication: PAIN
  6. BABY ASPIRIN [Concomitant]
     Active Substance: ASPIRIN
     Indication: PRODUCT USED FOR UNKNOWN INDICATION
  7. LIPITOR [Concomitant]
     Active Substance: ATORVASTATIN CALCIUM
     Indication: BLOOD CHOLESTEROL INCREASED
  8. MYSOLINE [Concomitant]
     Active Substance: PRIMIDONE
     Indication: TREMOR

REACTIONS (11)
  - Mobility decreased [Not Recovered/Not Resolved]
  - Postoperative thrombosis [Not Recovered/Not Resolved]
  - Aortic aneurysm [Recovered/Resolved]
  - Atrial fibrillation [Recovered/Resolved]
  - Procedural pain [Not Recovered/Not Resolved]
  - Incision site vesicles [Not Recovered/Not Resolved]
  - Testicular cyst [Recovered/Resolved]
  - Gait disturbance [Recovered/Resolved]
  - Atrial flutter [Recovered/Resolved]
  - Hypotension [Recovering/Resolving]
  - Testicular pain [Not Recovered/Not Resolved]

NARRATIVE: CASE EVENT DATE: 201711
